FAERS Safety Report 9222412 (Version 1)
Quarter: 2013Q2

REPORT INFORMATION
  Report Type: Spontaneous
  Country: US (occurrence: US)
  Receive Date: 20130410
  Receipt Date: 20130410
  Transmission Date: 20140414
  Serious: No
  Sender: FDA-Public Use
  Company Number: US-009507513-1304USA002270

PATIENT
  Sex: Female

DRUGS (1)
  1. AZASITE [Suspect]
     Dosage: UNK
     Route: 031

REACTIONS (3)
  - Adverse event [Unknown]
  - Incorrect drug administration duration [Unknown]
  - Product quality issue [Unknown]
